FAERS Safety Report 5421477-9 (Version None)
Quarter: 2007Q3

REPORT INFORMATION
  Report Type: 
  Country: None (occurrence: None)
  Receive Date: 20070821
  Receipt Date: 20070810
  Transmission Date: 20080115
  Serious: Yes (Hospitalization, Other)
  Sender: FDA-Public Use
  Company Number: FR-PFIZER INC-2007067534

PATIENT
  Sex: Male

DRUGS (1)
  1. SUTENT [Suspect]
     Indication: HEPATIC NEOPLASM MALIGNANT

REACTIONS (4)
  - ASCITES [None]
  - BLOOD CREATININE INCREASED [None]
  - DYSPNOEA [None]
  - OEDEMA [None]
